FAERS Safety Report 13512857 (Version 1)
Quarter: 2017Q2

REPORT INFORMATION
  Report Type: Report from Study
  Country: US (occurrence: US)
  Receive Date: 20170504
  Receipt Date: 20170504
  Transmission Date: 20170830
  Serious: Yes (Hospitalization)
  Sender: FDA-Public Use
  Company Number: US-ASTRAZENECA-2017SE39270

PATIENT
  Age: 28245 Day
  Sex: Male
  Weight: 70.8 kg

DRUGS (2)
  1. BYDUREON [Suspect]
     Active Substance: EXENATIDE
     Indication: BLOOD GLUCOSE ABNORMAL
     Route: 065
     Dates: start: 20170217
  2. BYDUREON [Suspect]
     Active Substance: EXENATIDE
     Indication: TYPE 2 DIABETES MELLITUS
     Route: 065
     Dates: start: 20170217

REACTIONS (6)
  - Vomiting [Unknown]
  - Abdominal pain upper [Unknown]
  - Weight decreased [Not Recovered/Not Resolved]
  - Appendicitis [Recovered/Resolved]
  - Decreased appetite [Unknown]
  - Body height decreased [Unknown]

NARRATIVE: CASE EVENT DATE: 20170228
